FAERS Safety Report 17197463 (Version 1)
Quarter: 2019Q4

REPORT INFORMATION
  Report Type: Report from Study
  Country: US (occurrence: US)
  Receive Date: 20191224
  Receipt Date: 20191224
  Transmission Date: 20200122
  Serious: Yes (Other)
  Sender: FDA-Public Use
  Company Number: US-OTSUKA-2019_042301

PATIENT
  Sex: Female

DRUGS (1)
  1. DEXTROMETHORPHAN/QUINIDINE [Suspect]
     Active Substance: DEXTROMETHORPHAN HYDROBROMIDE\QUINIDINE SULFATE
     Indication: AFFECT LABILITY
     Dosage: 1 DF(1 CAPSULE), BID (TWICE DAILY)
     Route: 065

REACTIONS (5)
  - Fall [Unknown]
  - Cognitive disorder [Unknown]
  - Dementia [Unknown]
  - Loss of personal independence in daily activities [Unknown]
  - Coordination abnormal [Unknown]
